FAERS Safety Report 4817103-X (Version None)
Quarter: 2005Q4

REPORT INFORMATION
  Report Type: 
  Country: None (occurrence: None)
  Receive Date: 20051101
  Receipt Date: 20051005
  Transmission Date: 20060501
  Serious: Yes (Death, Hospitalization)
  Sender: FDA-Public Use
  Company Number: HQWYE839705OCT05

PATIENT
  Sex: Female

DRUGS (2)
  1. ENBREL [Suspect]
     Indication: JUVENILE ARTHRITIS
     Dosage: 0.4MG/KG FREQUENCY UNSPECIFIED
     Route: 058
     Dates: end: 20051001
  2. METHOTREXATE [Concomitant]
     Dates: start: 20050629

REACTIONS (2)
  - COMA HEPATIC [None]
  - HEPATITIS A [None]
